FAERS Safety Report 18361519 (Version 1)
Quarter: 2020Q4

REPORT INFORMATION
  Report Type: Spontaneous
  Country: US (occurrence: US)
  Receive Date: 20201008
  Receipt Date: 20201008
  Transmission Date: 20210114
  Serious: No
  Sender: FDA-Public Use
  Company Number: US-ALKERMES INC.-ALK-2020-002598

PATIENT
  Age: 49 Year
  Sex: Female

DRUGS (2)
  1. ARISTADA [Suspect]
     Active Substance: ARIPIPRAZOLE LAUROXIL
     Dosage: 662 MILLIGRAM, QMO
     Route: 030
  2. ARISTADA [Suspect]
     Active Substance: ARIPIPRAZOLE LAUROXIL
     Indication: SCHIZOPHRENIA
     Dosage: 662 MILLIGRAM, QMO
     Route: 030
     Dates: start: 20200623

REACTIONS (2)
  - Dehydration [Unknown]
  - Hiccups [Not Recovered/Not Resolved]

NARRATIVE: CASE EVENT DATE: 20200624
